FAERS Safety Report 25690020 (Version 1)
Quarter: 2025Q3

REPORT INFORMATION
  Report Type: Spontaneous
  Country: US (occurrence: None)
  Receive Date: 20250815
  Receipt Date: 20250815
  Transmission Date: 20251020
  Serious: No
  Sender: FDA-CTU
  Company Number: None

PATIENT
  Age: 61 Year
  Sex: Female

DRUGS (1)
  1. AMBRISENTAN [Suspect]
     Active Substance: AMBRISENTAN
     Indication: Pulmonary arterial hypertension
     Dosage: FREQUENCY : DAILY;?
     Route: 048
     Dates: start: 20250617, end: 20250815

REACTIONS (5)
  - Peripheral swelling [None]
  - Erythema [None]
  - Tenderness [None]
  - Cardiac failure congestive [None]
  - Therapy cessation [None]

NARRATIVE: CASE EVENT DATE: 20150815
